FAERS Safety Report 6968300-9 (Version None)
Quarter: 2010Q3

REPORT INFORMATION
  Report Type: 
  Country: None (occurrence: None)
  Receive Date: 20100907
  Receipt Date: 20100903
  Transmission Date: 20110219
  Serious: Yes (Life-Threatening)
  Sender: FDA-Public Use
  Company Number: JP-JNJFOC-20100708713

PATIENT
  Sex: Female

DRUGS (10)
  1. LEVOFLOXACIN [Suspect]
     Indication: BRONCHITIS
     Route: 048
  2. LEVOFLOXACIN [Suspect]
     Indication: PNEUMONIA
     Route: 048
  3. METFORMIN HCL [Suspect]
     Indication: DIABETES MELLITUS
     Route: 048
  4. GLYBURIDE [Suspect]
     Indication: DIABETES MELLITUS
     Route: 048
  5. MEDICON [Suspect]
     Indication: BRONCHITIS
     Route: 048
  6. MUCODYNE [Concomitant]
     Indication: BRONCHITIS
     Route: 048
  7. MICARDIS [Concomitant]
     Indication: HYPERTENSION
     Route: 048
  8. EBRANTIL [Concomitant]
     Indication: NEUROGENIC BLADDER
     Route: 048
  9. PARIET [Concomitant]
     Indication: REFLUX OESOPHAGITIS
     Route: 048
  10. LANDEL [Concomitant]
     Indication: HYPERTENSION
     Route: 048

REACTIONS (2)
  - HYPOGLYCAEMIC COMA [None]
  - OVERDOSE [None]
